FAERS Safety Report 9552977 (Version 1)
Quarter: 2013Q3

REPORT INFORMATION
  Report Type: Spontaneous
  Country: MX (occurrence: MX)
  Receive Date: 20130925
  Receipt Date: 20130925
  Transmission Date: 20140515
  Serious: Yes (Other)
  Sender: FDA-Public Use
  Company Number: PHHY2013MX106744

PATIENT
  Age: 60 Year
  Sex: Female

DRUGS (4)
  1. EXFORGE HCT [Suspect]
     Indication: HYPERTENSION
     Dosage: 0.5 DF (320/10/12.5MG), DAILY
     Route: 048
     Dates: start: 2008, end: 2012
  2. EXFORGE HCT [Suspect]
     Dosage: 0.5 DF (160/5/12.5MG), DAILY
     Route: 048
     Dates: start: 2012
  3. TENORMIN [Concomitant]
     Indication: ARRHYTHMIA
     Dosage: UNK UKN, UNK
  4. EUTIROX [Concomitant]
     Indication: HYPOTHYROIDISM
     Dosage: UNK UKN, UNK
     Dates: start: 2011

REACTIONS (2)
  - Cholelithiasis [Recovered/Resolved]
  - Wrong technique in drug usage process [Not Recovered/Not Resolved]
